FAERS Safety Report 14237161 (Version 1)
Quarter: 2017Q4

REPORT INFORMATION
  Report Type: Report from Study
  Country: US (occurrence: US)
  Receive Date: 20171129
  Receipt Date: 20171129
  Transmission Date: 20180321
  Serious: Yes (Death)
  Sender: FDA-Public Use
  Company Number: US-EXELIXIS-CABO-17011427

PATIENT
  Age: 73 Year
  Sex: Male

DRUGS (10)
  1. CABOMETYX [Suspect]
     Active Substance: CABOZANTINIB S-MALATE
     Indication: RENAL CANCER
     Dosage: 60 MG, QD
     Route: 048
     Dates: start: 20170323
  2. OXYCODONE [Concomitant]
     Active Substance: OXYCODONE
  3. CALCIUM CARB/D3/MAGNESIUM/ZINC [Concomitant]
  4. VITAMIN D3 [Concomitant]
     Active Substance: CHOLECALCIFEROL
  5. VITAMIN B12 [Concomitant]
     Active Substance: CYANOCOBALAMIN
  6. MULTI VIT [Concomitant]
  7. FISH OIL [Concomitant]
     Active Substance: FISH OIL
  8. GABAPENTIN. [Concomitant]
     Active Substance: GABAPENTIN
  9. MS CONTIN [Concomitant]
     Active Substance: MORPHINE SULFATE
  10. LEVOTHYROXINE. [Concomitant]
     Active Substance: LEVOTHYROXINE

REACTIONS (1)
  - Death [Fatal]

NARRATIVE: CASE EVENT DATE: 20171018
